FAERS Safety Report 21327656 (Version 1)
Quarter: 2022Q3

REPORT INFORMATION
  Report Type: Spontaneous
  Country: CN (occurrence: CN)
  Receive Date: 20220913
  Receipt Date: 20220913
  Transmission Date: 20221027
  Serious: Yes (Life-Threatening, Hospitalization, Other)
  Sender: FDA-Public Use
  Company Number: CN-009507513-2209CHN002544

PATIENT
  Age: 34 Year
  Sex: Female

DRUGS (2)
  1. CILASTATIN SODIUM\IMIPENEM [Suspect]
     Active Substance: CILASTATIN SODIUM\IMIPENEM
     Indication: End stage renal disease
     Dosage: 0.5 G, Q12H, ROUTE: IV DRIP (IVGTT/MICROPUMP)
     Route: 041
     Dates: start: 20220802, end: 20220819
  2. CILASTATIN SODIUM\IMIPENEM [Suspect]
     Active Substance: CILASTATIN SODIUM\IMIPENEM
     Dosage: 0.5 G, Q12H, ROUTE: PUMP INJECTION (IVGTT/MICROPUMP)
     Dates: start: 20220802, end: 20220819

REACTIONS (2)
  - Drug eruption [Recovering/Resolving]
  - Dermatitis exfoliative [Recovering/Resolving]

NARRATIVE: CASE EVENT DATE: 20220817
